FAERS Safety Report 24885838 (Version 3)
Quarter: 2025Q1

REPORT INFORMATION
  Report Type: Report from Study
  Country: US (occurrence: US)
  Receive Date: 20250125
  Receipt Date: 20250203
  Transmission Date: 20250409
  Serious: Yes (Hospitalization, Other)
  Sender: ABBVIE
  Company Number: US-ABBVIE-6098236

PATIENT
  Age: 31 Year
  Sex: Female
  Weight: 144 kg

DRUGS (2)
  1. HUMIRA [Suspect]
     Active Substance: ADALIMUMAB
     Indication: Hidradenitis
     Dosage: FORM STRENGTH: 80 MILLIGRAM
     Route: 058
     Dates: start: 20241119, end: 202412
  2. HUMIRA [Suspect]
     Active Substance: ADALIMUMAB
     Route: 058

REACTIONS (12)
  - Infected cyst [Recovering/Resolving]
  - Urinary tract infection [Recovered/Resolved]
  - Haemoglobin decreased [Unknown]
  - White blood cell count increased [Unknown]
  - Hidradenitis [Recovering/Resolving]
  - Axillary pain [Recovering/Resolving]
  - Pain [Unknown]
  - Skin ulcer [Unknown]
  - Haematocrit decreased [Unknown]
  - Coccydynia [Recovering/Resolving]
  - Red blood cell count decreased [Unknown]
  - Infected cyst [Recovering/Resolving]

NARRATIVE: CASE EVENT DATE: 20241201
